FAERS Safety Report 8684687 (Version 2)
Quarter: 2012Q4

REPORT INFORMATION
  Report Type: 
  Country: US (occurrence: US)
  Receive Date: 20120726
  Receipt Date: 20120913
  Transmission Date: 20130627
  Serious: No
  Sender: FDA-Public Use
  Company Number: US-ASTRAZENECA-2011SE19757

PATIENT
  Age: 54 Year
  Sex: Female

DRUGS (5)
  1. SEROQUEL [Suspect]
     Indication: INSOMNIA
     Dosage: DAILY
     Route: 048
  2. SEROQUEL [Suspect]
     Indication: INSOMNIA
     Dosage: UP TO 600 MG AT NIGHT
     Route: 048
  3. SEROQUEL [Suspect]
     Indication: INSOMNIA
     Route: 048
  4. SEROQUEL [Suspect]
     Indication: INSOMNIA
     Route: 048
  5. SEROQUEL [Suspect]
     Indication: INSOMNIA
     Route: 048

REACTIONS (6)
  - Therapeutic response unexpected [Unknown]
  - Initial insomnia [Unknown]
  - Insomnia [Unknown]
  - Pain [Unknown]
  - Off label use [Unknown]
  - Intentional drug misuse [Unknown]
